FAERS Safety Report 11832945 (Version 2)
Quarter: 2019Q3

REPORT INFORMATION
  Report Type: Report from Study
  Country: US (occurrence: US)
  Receive Date: 20151214
  Receipt Date: 20190822
  Transmission Date: 20191004
  Serious: Yes (Other)
  Sender: FDA-Public Use
  Company Number: US-SA-2015SA206392

PATIENT
  Age: 70 Year
  Sex: Female

DRUGS (3)
  1. INSULIN GLARGINE [Suspect]
     Active Substance: INSULIN GLARGINE
     Dosage: 160 U, QD
     Route: 058
  2. INSULIN GLARGINE [Suspect]
     Active Substance: INSULIN GLARGINE
     Dosage: UNK (77 UNITS IN THE MORNING AND 53 UNITS IN THE EVENING)
     Route: 058
  3. INSULIN GLARGINE [Suspect]
     Active Substance: INSULIN GLARGINE
     Indication: TYPE 2 DIABETES MELLITUS
     Dosage: UNK UNK, BID (30 UNITS IN THE MORNING AND 40 UNITS AT NIGHT )

REACTIONS (10)
  - Hyperhidrosis [Not Recovered/Not Resolved]
  - Eye infection [Unknown]
  - Weight decreased [Not Recovered/Not Resolved]
  - Blood glucose abnormal [Not Recovered/Not Resolved]
  - Malaise [Unknown]
  - Retinal artery occlusion [Not Recovered/Not Resolved]
  - Intraocular pressure increased [Unknown]
  - Inappropriate schedule of product administration [Unknown]
  - Visual impairment [Recovering/Resolving]
  - Hypoacusis [Not Recovered/Not Resolved]

NARRATIVE: CASE EVENT DATE: 2013
